FAERS Safety Report 6168747-7 (Version None)
Quarter: 2009Q2

REPORT INFORMATION
  Report Type: 
  Country: None (occurrence: None)
  Receive Date: 20090427
  Receipt Date: 20090420
  Transmission Date: 20091009
  Serious: Yes (Hospitalization, Other)
  Sender: FDA-Public Use
  Company Number: US-MERCK-0803USA02812

PATIENT
  Age: 57 Year
  Sex: Female

DRUGS (5)
  1. ZOCOR [Suspect]
     Indication: BLOOD CHOLESTEROL INCREASED
     Route: 048
     Dates: start: 20051013
  2. HALDOL [Concomitant]
     Indication: MENTAL DISORDER
     Route: 051
  3. ASPIRIN [Concomitant]
     Route: 065
  4. HYDRODIURIL [Concomitant]
     Route: 048
  5. TRIAMTERENE [Concomitant]
     Route: 065

REACTIONS (10)
  - ABDOMINAL PAIN UPPER [None]
  - CEREBRAL MICROANGIOPATHY [None]
  - DRUG SCREEN POSITIVE [None]
  - GRAND MAL CONVULSION [None]
  - HEPATIC STEATOSIS [None]
  - HYPERTENSION [None]
  - INSOMNIA [None]
  - LEUKOCYTOSIS [None]
  - SYNCOPE [None]
  - URINARY TRACT INFECTION [None]
